FAERS Safety Report 12697987 (Version 1)
Quarter: 2016Q3

REPORT INFORMATION
  Report Type: Spontaneous
  Country: US (occurrence: None)
  Receive Date: 20160829
  Receipt Date: 20160829
  Transmission Date: 20161109
  Serious: Yes (Hospitalization)
  Sender: FDA-Public Use
  Company Number: None

PATIENT
  Age: 28 Year
  Sex: Male

DRUGS (11)
  1. VITAMI D [Concomitant]
  2. RENAGEL [Concomitant]
     Active Substance: SEVELAMER HYDROCHLORIDE
  3. TRAMADOL HCL [Concomitant]
     Active Substance: TRAMADOL HYDROCHLORIDE
  4. KIONEX [Concomitant]
     Active Substance: SODIUM POLYSTYRENE SULFONATE
  5. AMLODIPINE [Concomitant]
     Active Substance: AMLODIPINE BESYLATE
  6. MINOXIDIL. [Concomitant]
     Active Substance: MINOXIDIL
  7. ISOSORB MONO [Concomitant]
     Active Substance: ISOSORBIDE MONONITRATE
  8. VELTASSA [Suspect]
     Active Substance: PATIROMER
     Indication: HYPERKALAEMIA
     Route: 048
     Dates: start: 20160713
  9. OXYCODONE AND ACETAMINOPHEN [Concomitant]
     Active Substance: ACETAMINOPHEN\OXYCODONE HYDROCHLORIDE
  10. HYDROXYCHLOR [Concomitant]
     Active Substance: HYDROXYCHLOROQUINE
  11. PRAZOSIN HCL [Concomitant]
     Active Substance: PRAZOSIN HYDROCHLORIDE

REACTIONS (1)
  - Device related infection [None]

NARRATIVE: CASE EVENT DATE: 20160810
